FAERS Safety Report 15571439 (Version 1)
Quarter: 2018Q4

REPORT INFORMATION
  Report Type: Spontaneous
  Country: US (occurrence: US)
  Receive Date: 20181031
  Receipt Date: 20181031
  Transmission Date: 20190205
  Serious: Yes (Other)
  Sender: FDA-Public Use
  Company Number: None

PATIENT
  Age: 35 Year
  Sex: Male
  Weight: 103.5 kg

DRUGS (1)
  1. CIPRODEX [Suspect]
     Active Substance: CIPROFLOXACIN HYDROCHLORIDE\DEXAMETHASONE
     Indication: EAR INFECTION
     Dosage: ?          QUANTITY:8 DROP(S);?
     Route: 001
     Dates: start: 20160228, end: 20160302

REACTIONS (4)
  - Instillation site exfoliation [None]
  - Instillation site haemorrhage [None]
  - Instillation site pruritus [None]
  - Instillation site discharge [None]

NARRATIVE: CASE EVENT DATE: 20160228
